FAERS Safety Report 6686851-1 (Version None)
Quarter: 2010Q2

REPORT INFORMATION
  Report Type: 
  Country: None (occurrence: None)
  Receive Date: 20100419
  Receipt Date: 20100412
  Transmission Date: 20101027
  Serious: Yes (Hospitalization, Other)
  Sender: FDA-Public Use
  Company Number: GB-BRISTOL-MYERS SQUIBB COMPANY-15058696

PATIENT
  Age: 57 Year
  Sex: Female

DRUGS (3)
  1. CISPLATIN [Suspect]
     Indication: ADENOCARCINOMA OF THE CERVIX
     Dosage: 75 MG/M2
  2. FLUOROURACIL [Suspect]
     Indication: ADENOCARCINOMA OF THE CERVIX
     Dosage: 1 DOSAGE FORM = 1 G/M2.
  3. RADIOTHERAPY [Suspect]
     Indication: ADENOCARCINOMA OF THE CERVIX
     Dosage: 1DF= 45 GY/25 FRACTIONS OVER FIVE WEEKS, TO THE PELVIS

REACTIONS (4)
  - DEHYDRATION [None]
  - ENCEPHALOPATHY [None]
  - RENAL IMPAIRMENT [None]
  - VENOUS THROMBOSIS [None]
